FAERS Safety Report 11876165 (Version 6)
Quarter: 2016Q1

REPORT INFORMATION
  Report Type: Spontaneous
  Country: ES (occurrence: ES)
  Receive Date: 20151229
  Receipt Date: 20160218
  Transmission Date: 20160526
  Serious: Yes (Death)
  Sender: FDA-Public Use
  Company Number: ES-CELGENE-ESP-2015123857

PATIENT
  Age: 61 Year
  Sex: Male

DRUGS (4)
  1. ABRAXANE [Suspect]
     Active Substance: PACLITAXEL
     Indication: ADENOCARCINOMA PANCREAS
     Route: 041
     Dates: start: 201306, end: 201404
  2. ABRAXANE [Suspect]
     Active Substance: PACLITAXEL
     Dosage: REDUCED DOSE
     Route: 041
     Dates: end: 201404
  3. GEMCITABINE [Concomitant]
     Active Substance: GEMCITABINE\GEMCITABINE HYDROCHLORIDE
     Indication: ADENOCARCINOMA PANCREAS
     Route: 065
     Dates: start: 201204, end: 201210
  4. GEMCITABINE [Concomitant]
     Active Substance: GEMCITABINE\GEMCITABINE HYDROCHLORIDE
     Route: 065
     Dates: start: 201306, end: 201404

REACTIONS (2)
  - Neurotoxicity [Recovered/Resolved]
  - Adenocarcinoma pancreas [Fatal]

NARRATIVE: CASE EVENT DATE: 201311
